FAERS Safety Report 5640501-1 (Version None)
Quarter: 2008Q1

REPORT INFORMATION
  Report Type: 
  Country: None (occurrence: None)
  Receive Date: 20080227
  Receipt Date: 20080222
  Transmission Date: 20080703
  Serious: Yes (Death)
  Sender: FDA-Public Use
  Company Number: US-BAXTER-2008BH000826

PATIENT
  Age: 54 Year
  Sex: Male
  Weight: 82 kg

DRUGS (4)
  1. HEPARIN SODIUM [Suspect]
     Indication: THROMBOSIS PROPHYLAXIS
     Route: 010
     Dates: start: 20010101, end: 20080205
  2. LYRICA [Concomitant]
     Indication: NEUROPATHY PERIPHERAL
     Dosage: DOSE UNIT:UNKNOWN
     Route: 048
  3. PHOSLO [Concomitant]
     Indication: SUPPLEMENTATION THERAPY
     Dosage: DOSE UNIT:UNKNOWN
     Route: 048
  4. CALCIUM [Concomitant]
     Indication: MINERAL SUPPLEMENTATION
     Dosage: DOSE UNIT:UNKNOWN
     Route: 048

REACTIONS (4)
  - CATHETER RELATED INFECTION [None]
  - INJECTION SITE PRURITUS [None]
  - RENAL FAILURE [None]
  - SEPSIS [None]
